FAERS Safety Report 6802641-0 (Version None)
Quarter: 2010Q2

REPORT INFORMATION
  Report Type: 
  Country: None (occurrence: None)
  Receive Date: 20100628
  Receipt Date: 20100615
  Transmission Date: 20101027
  Serious: Yes (Other)
  Sender: FDA-Public Use
  Company Number: PHHY2008BR30471

PATIENT
  Age: 31 Year
  Sex: Female
  Weight: 58 kg

DRUGS (2)
  1. DICLOFENAC SODIUM [Suspect]
     Indication: NECK PAIN
     Dosage: 70 MG/DAY (1CAPSULE/DAY)
     Route: 048
     Dates: start: 20081116, end: 20081121
  2. CIZAX [Concomitant]
     Indication: NECK PAIN
     Dosage: 5 MG/DAY (1 TABLET/DAY)
     Route: 048
     Dates: start: 20081116, end: 20081121

REACTIONS (6)
  - ABDOMINAL PAIN [None]
  - ASTHENIA [None]
  - BLOOD PRESSURE DECREASED [None]
  - CAESAREAN SECTION [None]
  - DRUG EXPOSURE DURING PREGNANCY [None]
  - MENSTRUATION DELAYED [None]
